FAERS Safety Report 22061931 (Version 12)
Quarter: 2024Q1

REPORT INFORMATION
  Report Type: Spontaneous
  Country: US (occurrence: US)
  Receive Date: 20230304
  Receipt Date: 20240328
  Transmission Date: 20240409
  Serious: Yes (Other)
  Sender: FDA-Public Use
  Company Number: US-GLAXOSMITHKLINE-US2023AMR033313

PATIENT

DRUGS (5)
  1. ZEJULA [Suspect]
     Active Substance: NIRAPARIB
     Indication: Ovarian cancer
     Dosage: 200 MG, QD
     Dates: start: 20230220, end: 202305
  2. ZEJULA [Suspect]
     Active Substance: NIRAPARIB
     Dosage: 100 MG, QD
     Dates: start: 20230619
  3. ZEJULA [Suspect]
     Active Substance: NIRAPARIB
     Dosage: 100 MG, QD
     Dates: start: 202307
  4. ZEJULA [Suspect]
     Active Substance: NIRAPARIB
     Indication: Ovarian cancer
     Dosage: 1 DF, QD
     Route: 048
  5. ZEJULA [Suspect]
     Active Substance: NIRAPARIB
     Dosage: 100 MG, QD

REACTIONS (11)
  - Pulmonary thrombosis [Not Recovered/Not Resolved]
  - Basal cell carcinoma [Recovering/Resolving]
  - Fatigue [Recovered/Resolved]
  - Blood pressure fluctuation [Not Recovered/Not Resolved]
  - Decreased activity [Not Recovered/Not Resolved]
  - Red blood cell count decreased [Recovered/Resolved]
  - Dyspnoea exertional [Recovered/Resolved]
  - Haemoglobin abnormal [Recovering/Resolving]
  - Full blood count decreased [Recovered/Resolved]
  - Hypertension [Not Recovered/Not Resolved]
  - Product dose omission issue [Unknown]
